FAERS Safety Report 20717184 (Version 3)
Quarter: 2022Q3

REPORT INFORMATION
  Report Type: Spontaneous
  Country: US (occurrence: US)
  Receive Date: 20220417
  Receipt Date: 20220930
  Transmission Date: 20221027
  Serious: No
  Sender: FDA-Public Use
  Company Number: US-SA-SAC20220412001571

PATIENT
  Sex: Female

DRUGS (1)
  1. AUBAGIO [Suspect]
     Active Substance: TERIFLUNOMIDE
     Indication: Multiple sclerosis
     Dosage: 14 MG, QD
     Route: 048
     Dates: start: 20190724

REACTIONS (10)
  - Musculoskeletal stiffness [Unknown]
  - Fatigue [Unknown]
  - Abdominal discomfort [Unknown]
  - Fall [Unknown]
  - Bladder disorder [Unknown]
  - Pain [Unknown]
  - Sensory disturbance [Unknown]
  - Muscle spasticity [Unknown]
  - Diarrhoea [Unknown]
  - Product dose omission issue [Unknown]

NARRATIVE: CASE EVENT DATE: 20220101
